FAERS Safety Report 5533050-2 (Version None)
Quarter: 2007Q4

REPORT INFORMATION
  Report Type: 
  Country: None (occurrence: None)
  Receive Date: 20071204
  Receipt Date: 20071126
  Transmission Date: 20080405
  Serious: Yes (Hospitalization)
  Sender: FDA-Public Use
  Company Number: JP-SP-2007-03535

PATIENT
  Age: 71 Year
  Sex: Male

DRUGS (4)
  1. IMMUCYST [Suspect]
     Indication: CARCINOMA IN SITU OF BLADDER
     Route: 043
     Dates: start: 20061211, end: 20070109
  2. IMMUCYST [Suspect]
     Route: 043
     Dates: start: 20061211, end: 20070109
  3. IMMUCYST [Suspect]
     Route: 043
     Dates: start: 20061211, end: 20070109
  4. TAMSULOSIN HCL [Concomitant]
     Route: 048
     Dates: start: 20061226, end: 20070125

REACTIONS (4)
  - BACK PAIN [None]
  - DYSURIA [None]
  - HAEMATURIA [None]
  - PYREXIA [None]
